FAERS Safety Report 5636593-6 (Version None)
Quarter: 2008Q1

REPORT INFORMATION
  Report Type: 
  Country: None (occurrence: None)
  Receive Date: 20080225
  Receipt Date: 20080221
  Transmission Date: 20080703
  Serious: Yes (Death)
  Sender: FDA-Public Use
  Company Number: PHBS2007GR20555

PATIENT
  Age: 11 Month

DRUGS (2)
  1. METHYLPREDNISOLONE [Suspect]
     Dosage: 10 MG/KG/DAY
  2. DEFEROXAMINE MESYLATE [Suspect]
     Indication: IRON OVERLOAD
     Dosage: 15-30 MG/KG/DAY

REACTIONS (10)
  - CATHETER SITE NECROSIS [None]
  - CATHETER SITE OEDEMA [None]
  - CATHETER SITE RELATED REACTION [None]
  - CD4 LYMPHOCYTES DECREASED [None]
  - CD8 LYMPHOCYTES DECREASED [None]
  - DEBRIDEMENT [None]
  - ESCHAR [None]
  - PHAEHYPHOMYCOSIS [None]
  - WHITE BLOOD CELL COUNT INCREASED [None]
  - ZYGOMYCOSIS [None]
